FAERS Safety Report 5244146-7 (Version None)
Quarter: 2007Q1

REPORT INFORMATION
  Report Type: 
  Country: None (occurrence: None)
  Receive Date: 20061201
  Receipt Date: 20060830
  Transmission Date: 20070707
  Serious: No
  Sender: FDA-Public Use
  Company Number: 2006PV020455

PATIENT
  Age: 58 Year
  Sex: Female

DRUGS (8)
  1. BYETTA [Suspect]
     Indication: DIABETES MELLITUS NON-INSULIN-DEPENDENT
     Dosage: 5 MCG;BID;SC
     Route: 058
     Dates: start: 20060824
  2. ACTOS /USA/ [Concomitant]
  3. REQUIP [Concomitant]
  4. PREVACID [Concomitant]
  5. ZIAC [Concomitant]
  6. BENICAR [Concomitant]
  7. LASIX [Concomitant]
  8. SYNTHROID [Concomitant]

REACTIONS (3)
  - ORAL DISCOMFORT [None]
  - ORAL PAIN [None]
  - STOMATITIS [None]
